FAERS Safety Report 18924135 (Version 1)
Quarter: 2021Q1

REPORT INFORMATION
  Report Type: Spontaneous
  Country: TW (occurrence: TW)
  Receive Date: 20210222
  Receipt Date: 20210222
  Transmission Date: 20210420
  Serious: Yes (Death, Hospitalization, Other)
  Sender: FDA-Public Use
  Company Number: TW-VIIV HEALTHCARE LIMITED-TW2021GSK037466

PATIENT
  Age: 46 Year
  Sex: Male

DRUGS (1)
  1. TRIUMEQ [Suspect]
     Active Substance: ABACAVIR SULFATE\DOLUTEGRAVIR SODIUM\LAMIVUDINE
     Indication: HIV INFECTION
     Dosage: UNK

REACTIONS (22)
  - Kaposi^s sarcoma [Unknown]
  - Chills [Unknown]
  - Lymphadenopathy [Unknown]
  - Pyrexia [Unknown]
  - Cytopenia [Unknown]
  - Splenomegaly [Unknown]
  - Hypoalbuminaemia [Unknown]
  - Gastritis haemorrhagic [Unknown]
  - Malaise [Unknown]
  - Weight decreased [Unknown]
  - Jaundice [Unknown]
  - Immune reconstitution inflammatory syndrome [Unknown]
  - Epigastric discomfort [Unknown]
  - Pancytopenia [Unknown]
  - Renal impairment [Unknown]
  - Cough [Unknown]
  - Dizziness [Unknown]
  - Coma [Unknown]
  - Decreased appetite [Unknown]
  - Multiple organ dysfunction syndrome [Fatal]
  - Castleman^s disease [Unknown]
  - Vomiting [Unknown]
